FAERS Safety Report 6567431-5 (Version None)
Quarter: 2010Q1

REPORT INFORMATION
  Report Type: 
  Country: None (occurrence: None)
  Receive Date: 20100128
  Receipt Date: 20100113
  Transmission Date: 20100710
  Serious: Yes (Death, Hospitalization)
  Sender: FDA-Public Use
  Company Number: 2009AC000354

PATIENT
  Age: 85 Year
  Sex: Male

DRUGS (27)
  1. DIGOXIN [Suspect]
     Dosage: 0.125 MG;QD;PO
     Route: 048
  2. DIGOXIN [Suspect]
     Dosage: 0.25 MG
     Dates: start: 20040101
  3. COUMADIN [Concomitant]
  4. VITAMIN K TAB [Concomitant]
  5. BETAPACE [Concomitant]
  6. LASIX [Concomitant]
  7. CARDIZEM [Concomitant]
  8. DETROL [Concomitant]
  9. FLOMAX [Concomitant]
  10. ECOTRIN [Concomitant]
  11. CARTIA XT [Concomitant]
  12. ALTACE [Concomitant]
  13. CIPRO [Concomitant]
  14. POTASSIUM [Concomitant]
  15. FUROSEMIDE [Concomitant]
  16. DILTIAZEM HCL [Concomitant]
  17. CIPROFLOXACIN [Concomitant]
  18. LORAZEPAM [Concomitant]
  19. TEMAZEPAM [Concomitant]
  20. POTASSIUM CHLORIDE [Concomitant]
  21. OMEPRAZOLE [Concomitant]
  22. NITROSTAT [Concomitant]
  23. KETOCONAZOLE [Concomitant]
  24. NIZORAL [Concomitant]
  25. WARFARIN SODIUM [Concomitant]
  26. ECOTRIN [Concomitant]
  27. LISINOPRIL [Concomitant]

REACTIONS (17)
  - ANURIA [None]
  - ARRHYTHMIA [None]
  - ATRIAL FIBRILLATION [None]
  - BENIGN PROSTATIC HYPERPLASIA [None]
  - CARDIAC FAILURE CONGESTIVE [None]
  - COAGULOPATHY [None]
  - CORONARY ARTERY DISEASE [None]
  - DECREASED APPETITE [None]
  - ECONOMIC PROBLEM [None]
  - FATIGUE [None]
  - HYPERTENSION [None]
  - INJURY [None]
  - INTERNATIONAL NORMALISED RATIO INCREASED [None]
  - PALPITATIONS [None]
  - SINUS TACHYCARDIA [None]
  - URINARY RETENTION [None]
  - WEIGHT DECREASED [None]
